FAERS Safety Report 13477475 (Version 1)
Quarter: 2017Q2

REPORT INFORMATION
  Report Type: Spontaneous
  Country: US (occurrence: US)
  Receive Date: 20170425
  Receipt Date: 20170425
  Transmission Date: 20170830
  Serious: Yes (Life-Threatening, Other)
  Sender: FDA-Public Use
  Company Number: None

PATIENT
  Age: 2 Year
  Sex: Female
  Weight: 9.3 kg

DRUGS (1)
  1. SUXAMETHONIUM(SUCCINYLCHOLINE) [Suspect]
     Active Substance: SUCCINYLCHOLINE
     Route: 043
     Dates: start: 20160328, end: 20160328

REACTIONS (2)
  - Hyperthermia malignant [None]
  - Pneumothorax [None]

NARRATIVE: CASE EVENT DATE: 20160328
